FAERS Safety Report 7081316-X (Version None)
Quarter: 2010Q4

REPORT INFORMATION
  Report Type: 
  Country: None (occurrence: None)
  Receive Date: 20101103
  Receipt Date: 20101020
  Transmission Date: 20110411
  Serious: Yes (Other)
  Sender: FDA-Public Use
  Company Number: PHHY2010US23791

PATIENT
  Sex: Male

DRUGS (4)
  1. EXJADE [Suspect]
     Indication: MYELODYSPLASTIC SYNDROME
     Dosage: 500 MG, BID
     Route: 048
  2. EXJADE [Suspect]
     Dosage: 1 DF BID
  3. ARANESP [Suspect]
     Indication: MYELODYSPLASTIC SYNDROME
     Dosage: 40,000 UNITS WEEKLY
     Dates: start: 20101001
  4. NEUPOGEN [Suspect]
     Indication: MYELODYSPLASTIC SYNDROME
     Dosage: 480 MICROGRAM WEEKLY
     Dates: start: 20101001

REACTIONS (3)
  - HEARING IMPAIRED [None]
  - INCORRECT DOSE ADMINISTERED [None]
  - OTITIS EXTERNA [None]
